FAERS Safety Report 17049603 (Version 7)
Quarter: 2019Q4

REPORT INFORMATION
  Report Type: Report from Study
  Country: US (occurrence: US)
  Receive Date: 20191119
  Receipt Date: 20191223
  Transmission Date: 20200122
  Serious: Yes (Hospitalization, Other)
  Sender: FDA-Public Use
  Company Number: US-BRISTOL-MYERS SQUIBB COMPANY-BMS-2019-109523

PATIENT
  Age: 46 Year
  Sex: Female
  Weight: 90.3 kg

DRUGS (6)
  1. PACLITAXEL. [Suspect]
     Active Substance: PACLITAXEL
     Indication: BREAST CANCER
     Dosage: 80 MILLIGRAM/SQ. METER, WEEKLY X4 CYCLE
     Route: 042
     Dates: start: 20190718, end: 20191009
  2. NIVOLUMAB [Suspect]
     Active Substance: NIVOLUMAB
     Indication: BREAST CANCER
     Dosage: 360 MILLIGRAM DAY 1 X 4 CYCLE
     Route: 042
     Dates: start: 20190718, end: 20190926
  3. CYCLOPHOSPHAMIDE. [Suspect]
     Active Substance: CYCLOPHOSPHAMIDE
     Indication: BREAST CANCER
     Dosage: 600 MILLIGRAM/SQ. METER, Q2WK (D1 D14 D CYCLE)
     Route: 042
     Dates: start: 20191018, end: 20191031
  4. PERTUZUMAB. [Suspect]
     Active Substance: PERTUZUMAB
     Indication: BREAST CANCER
     Dosage: 420 MILLIGRAM, DAY 1 X 4 CYCLE
     Route: 042
     Dates: start: 20190718, end: 20190926
  5. TRASTUZUMAB. [Suspect]
     Active Substance: TRASTUZUMAB
     Indication: BREAST CANCER
     Dosage: 6 MILLIGRAM/KILOGRAM, DAY 1 X 4 CYCLE
     Route: 042
     Dates: start: 20190718, end: 20190926
  6. DOXORUBICIN [Suspect]
     Active Substance: DOXORUBICIN
     Indication: BREAST CANCER
     Dosage: 60 MILLIGRAM/SQ. METER, Q2WK (D1 D14 D CYCLE)
     Route: 042
     Dates: start: 20191018, end: 20191031

REACTIONS (2)
  - Febrile neutropenia [Unknown]
  - Hypersensitivity [Recovered/Resolved with Sequelae]

NARRATIVE: CASE EVENT DATE: 20191108
